FAERS Safety Report 14843057 (Version 1)
Quarter: 2018Q2

REPORT INFORMATION
  Report Type: Report from Study
  Country: DE (occurrence: DE)
  Receive Date: 20180503
  Receipt Date: 20180503
  Transmission Date: 20180711
  Serious: Yes (Death, Hospitalization)
  Sender: FDA-Public Use
  Company Number: DE-TEVA-2018-DE-887063

PATIENT
  Age: 77 Year
  Sex: Female
  Weight: 69.6 kg

DRUGS (4)
  1. BEVACIZUMAB. [Suspect]
     Active Substance: BEVACIZUMAB
     Indication: BREAST CANCER
     Dosage: THIRD CYCLE FROM 11-JAN-2010 - 08-MAR-2010.
     Route: 042
  2. ZOMETA [Concomitant]
     Active Substance: ZOLEDRONIC ACID
     Indication: BREAST CANCER
     Route: 042
  3. AVASTIN [Suspect]
     Active Substance: BEVACIZUMAB
     Indication: BREAST CANCER
     Dosage: THIRD CYCLE FROM 11-JAN-2010 - 08-MAR-2010.
     Route: 042
     Dates: start: 20100111, end: 20100308
  4. PACLITAXEL. [Suspect]
     Active Substance: PACLITAXEL
     Indication: BREAST CANCER
     Dosage: THIRD CYCLE FROM 11-JAN-2010 - 15-MAR-2010.
     Route: 042
     Dates: start: 20100111, end: 20100315

REACTIONS (1)
  - Pancytopenia [Fatal]

NARRATIVE: CASE EVENT DATE: 20100322
